FAERS Safety Report 7255356-1 (Version None)
Quarter: 2011Q1

REPORT INFORMATION
  Report Type: 
  Country: None (occurrence: None)
  Receive Date: 20110129
  Receipt Date: 20100322
  Transmission Date: 20110831
  Serious: No
  Sender: FDA-Public Use
  Company Number: US-ABBOTT-10P-163-0634536-00

PATIENT
  Sex: Female

DRUGS (3)
  1. ALEGRA [Concomitant]
     Indication: SEASONAL ALLERGY
  2. TOLMETIN SODIUM [Concomitant]
     Indication: ARTHRALGIA
  3. HUMIRA [Suspect]
     Indication: PSORIATIC ARTHROPATHY
     Dates: start: 20080101, end: 20100114

REACTIONS (3)
  - EAR INFECTION [None]
  - SINUSITIS [None]
  - CYSTITIS [None]
